FAERS Safety Report 13818298 (Version 1)
Quarter: 2017Q3

REPORT INFORMATION
  Report Type: Spontaneous
  Country: US (occurrence: US)
  Receive Date: 20170731
  Receipt Date: 20170731
  Transmission Date: 20171127
  Serious: No
  Sender: FDA-Public Use
  Company Number: US-ROCHE-704341

PATIENT
  Sex: Female

DRUGS (1)
  1. BONIVA [Suspect]
     Active Substance: IBANDRONATE SODIUM
     Indication: PRODUCT USED FOR UNKNOWN INDICATION
     Dosage: FORM:INJECTION
     Route: 065

REACTIONS (5)
  - Myalgia [Unknown]
  - Pruritus [Unknown]
  - Anxiety [Unknown]
  - Muscle spasms [Unknown]
  - Arthralgia [Unknown]
